FAERS Safety Report 12231276 (Version 2)
Quarter: 2016Q2

REPORT INFORMATION
  Report Type: Spontaneous
  Country: BR (occurrence: BR)
  Receive Date: 20160401
  Receipt Date: 20160411
  Transmission Date: 20160815
  Serious: Yes (Other)
  Sender: FDA-Public Use
  Company Number: BR-PFIZER INC-2011006832

PATIENT
  Age: 60 Year
  Sex: Male
  Weight: 87 kg

DRUGS (2)
  1. STILNOX [Concomitant]
     Active Substance: ZOLPIDEM TARTRATE
     Indication: SLEEP DISORDER
     Dosage: UNK
  2. FRONTAL [Suspect]
     Active Substance: ALPRAZOLAM
     Indication: BLOOD PRESSURE ABNORMAL
     Dosage: 1 TABLET OF 0.5MG AND 1 TABLET OF 1MG, UNSPECIFIED FREQUENCY
     Dates: start: 20101215

REACTIONS (1)
  - Parkinson^s disease [Unknown]

NARRATIVE: CASE EVENT DATE: 2011
